FAERS Safety Report 6437918-4 (Version None)
Quarter: 2009Q4

REPORT INFORMATION
  Report Type: 
  Country: None (occurrence: None)
  Receive Date: 20091112
  Receipt Date: 20091031
  Transmission Date: 20100525
  Serious: Yes (Hospitalization, Other)
  Sender: FDA-Public Use
  Company Number: CL-PFIZER INC-2009292571

PATIENT
  Sex: Male

DRUGS (7)
  1. SUTENT [Suspect]
     Indication: RENAL CANCER
     Dosage: 37.5 MG, 4 WEEKS OF TREATMENT, 2 WEEKS OF REST
     Route: 048
     Dates: start: 20081201, end: 20090910
  2. GEMFIBROZIL [Concomitant]
  3. ATENOLOL [Concomitant]
     Indication: HYPERTENSION
  4. ENALAPRIL [Concomitant]
     Indication: HYPERTENSION
  5. MIRTAZAPINE [Concomitant]
  6. OMEPRAZOLE [Concomitant]
  7. CUMADIN [Concomitant]

REACTIONS (7)
  - DECREASED APPETITE [None]
  - DEPRESSED MOOD [None]
  - DRUG TOXICITY [None]
  - FATIGUE [None]
  - HYPOTHYROIDISM [None]
  - PLEURISY [None]
  - THROMBOSIS [None]
